FAERS Safety Report 10249950 (Version 1)
Quarter: 2014Q2

REPORT INFORMATION
  Report Type: Spontaneous
  Country: US (occurrence: US)
  Receive Date: 20140620
  Receipt Date: 20140620
  Transmission Date: 20141212
  Serious: Yes (Other)
  Sender: FDA-Public Use
  Company Number: US-WATSON-2014-13910

PATIENT
  Age: 7 Month
  Sex: 0

DRUGS (1)
  1. TRANEXAMIC ACID (WATSON LABORATORIES) [Suspect]
     Indication: CRANIOSYNOSTOSIS
     Dosage: UNKNOWN
     Route: 065

REACTIONS (2)
  - Cerebral hypoperfusion [Recovered/Resolved]
  - Muscular weakness [Recovered/Resolved]
